FAERS Safety Report 9122822 (Version 1)
Quarter: 2013Q1

REPORT INFORMATION
  Report Type: Report from Study
  Country: CA (occurrence: CA)
  Receive Date: 20130227
  Receipt Date: 20130227
  Transmission Date: 20140127
  Serious: Yes (Other)
  Sender: FDA-Public Use
  Company Number: CA-JNJFOC-20130213960

PATIENT
  Age: 18 None
  Sex: Female
  Weight: 48 kg

DRUGS (5)
  1. REMICADE [Suspect]
     Indication: CROHN^S DISEASE
     Route: 042
     Dates: start: 20130107
  2. CALCIUM [Concomitant]
     Dosage: QD
     Route: 065
  3. CORTISONE [Concomitant]
     Dosage: QD
     Route: 065
  4. FERROUS SULFATE [Concomitant]
     Dosage: 2 TABLETS QD
     Route: 065
  5. IMURAN [Concomitant]
     Dosage: 2 TABLETS QD
     Route: 065

REACTIONS (5)
  - Therapeutic response decreased [Not Recovered/Not Resolved]
  - Pyrexia [Not Recovered/Not Resolved]
  - Vomiting [Not Recovered/Not Resolved]
  - Heart rate increased [Not Recovered/Not Resolved]
  - Decreased appetite [Not Recovered/Not Resolved]
